FAERS Safety Report 15584798 (Version 1)
Quarter: 2018Q4

REPORT INFORMATION
  Report Type: Spontaneous
  Country: US (occurrence: US)
  Receive Date: 20181105
  Receipt Date: 20181105
  Transmission Date: 20190205
  Serious: Yes (Other)
  Sender: FDA-Public Use
  Company Number: None

PATIENT
  Age: 77 Year
  Sex: Female
  Weight: 48.6 kg

DRUGS (11)
  1. LEVOFLOXACIN, 500MG, TAB [Suspect]
     Active Substance: LEVOFLOXACIN
     Indication: CHRONIC OBSTRUCTIVE PULMONARY DISEASE
     Dosage: ?          QUANTITY:1 TABLET(S);?
     Route: 048
     Dates: start: 20180908, end: 20180910
  2. ATORVASTATION [Concomitant]
  3. LISINOPRIL. [Concomitant]
     Active Substance: LISINOPRIL
  4. PROAIR HFA [Concomitant]
     Active Substance: ALBUTEROL SULFATE
  5. VIT B-12 [Concomitant]
  6. CALCIUM W/VT D [Concomitant]
  7. DULERA [Concomitant]
     Active Substance: FORMOTEROL FUMARATE DIHYDRATE\MOMETASONE FUROATE
  8. PROLIA [Concomitant]
     Active Substance: DENOSUMAB
  9. 81MG BAYER ASPIRIN [Concomitant]
  10. XARELTO [Concomitant]
     Active Substance: RIVAROXABAN
  11. EPIPEN [Concomitant]
     Active Substance: EPINEPHRINE

REACTIONS (4)
  - Tendon rupture [None]
  - General physical condition abnormal [None]
  - Gait inability [None]
  - Muscle spasms [None]

NARRATIVE: CASE EVENT DATE: 20180909
